FAERS Safety Report 8175163-5 (Version None)
Quarter: 2012Q1

REPORT INFORMATION
  Report Type: 
  Country: None (occurrence: None)
  Receive Date: 20120229
  Receipt Date: 20120224
  Transmission Date: 20120608
  Serious: Yes (Other)
  Sender: FDA-Public Use
  Company Number: PHFR2012IE001397

PATIENT
  Sex: Male

DRUGS (4)
  1. CLOZARIL [Suspect]
     Dosage: 25 MG
     Route: 048
     Dates: start: 20120225
  2. OLANZAPINE [Concomitant]
     Dosage: 10 MG
  3. CLOZARIL [Suspect]
     Dosage: 350 MG
     Route: 048
  4. CLOZARIL [Suspect]
     Indication: SCHIZOPHRENIA
     Dosage: 500 MG (150 MG AT AM AND 350 MG AT PM)
     Route: 048
     Dates: start: 20080922

REACTIONS (1)
  - INCORRECT DOSE ADMINISTERED [None]
